FAERS Safety Report 17956381 (Version 1)
Quarter: 2020Q2

REPORT INFORMATION
  Report Type: Spontaneous
  Country: DE (occurrence: DE)
  Receive Date: 20200629
  Receipt Date: 20200629
  Transmission Date: 20200714
  Serious: Yes (Other)
  Sender: FDA-Public Use
  Company Number: DE-BAYER-2020-123324

PATIENT
  Age: 46 Year
  Sex: Male
  Weight: 82 kg

DRUGS (1)
  1. CIPROBAY 500 MG [Suspect]
     Active Substance: CIPROFLOXACIN
     Indication: CYSTITIS
     Dosage: 500 MG, BID
     Dates: start: 20180516, end: 20180521

REACTIONS (8)
  - Palpitations [None]
  - Visual impairment [None]
  - Impaired work ability [Not Recovered/Not Resolved]
  - Tendon pain [None]
  - Arthralgia [None]
  - Feeling abnormal [None]
  - Dizziness [None]
  - Rash [None]

NARRATIVE: CASE EVENT DATE: 2018
